FAERS Safety Report 23450456 (Version 1)
Quarter: 2024Q1

REPORT INFORMATION
  Report Type: Spontaneous
  Country: CN (occurrence: CN)
  Receive Date: 20240129
  Receipt Date: 20240129
  Transmission Date: 20240409
  Serious: Yes (Death, Other)
  Sender: FDA-Public Use
  Company Number: CN-ASTELLAS-2024US001359

PATIENT
  Age: 80 Year
  Sex: Male

DRUGS (2)
  1. ISAVUCONAZOLE [Suspect]
     Active Substance: ISAVUCONAZOLE
     Indication: Aspergillus infection
     Route: 065
     Dates: start: 20240103, end: 20240104
  2. ISAVUCONAZOLE [Suspect]
     Active Substance: ISAVUCONAZOLE
     Route: 065
     Dates: start: 20240105

REACTIONS (3)
  - Acute kidney injury [Fatal]
  - Palpitations [Unknown]
  - Dyspnoea [Unknown]
